FAERS Safety Report 5833605-1 (Version None)
Quarter: 2008Q3

REPORT INFORMATION
  Report Type: 
  Country: None (occurrence: None)
  Receive Date: 20080805
  Receipt Date: 20080725
  Transmission Date: 20090109
  Serious: Yes (Hospitalization)
  Sender: FDA-Public Use
  Company Number: FR-AVENTIS-200812839FR

PATIENT
  Age: 93 Year
  Sex: Female

DRUGS (12)
  1. LASILIX FAIBLE [Suspect]
     Route: 048
     Dates: start: 20080622, end: 20080622
  2. DIAMICRON [Suspect]
     Route: 048
     Dates: start: 20080622, end: 20080622
  3. ARICEPT [Suspect]
     Route: 048
     Dates: start: 20080622, end: 20080622
  4. LEVOTHYROX [Suspect]
     Route: 048
     Dates: start: 20080622, end: 20080622
  5. LEVOTHYROX [Suspect]
     Route: 048
     Dates: start: 20080622, end: 20080622
  6. NICARDIPINE HCL [Suspect]
     Route: 048
     Dates: start: 20080622, end: 20080622
  7. CORDARONE [Concomitant]
     Indication: DRUG USE FOR UNKNOWN INDICATION
     Route: 048
  8. COVERSYL                           /00790701/ [Concomitant]
     Indication: DRUG USE FOR UNKNOWN INDICATION
     Route: 048
  9. ART [Concomitant]
     Indication: DRUG USE FOR UNKNOWN INDICATION
     Route: 048
  10. DOLIPRANE [Concomitant]
     Indication: DRUG USE FOR UNKNOWN INDICATION
  11. NITRODERM [Concomitant]
     Indication: DRUG USE FOR UNKNOWN INDICATION
     Route: 062
  12. KARDEGIC                           /00002703/ [Concomitant]
     Indication: DRUG USE FOR UNKNOWN INDICATION
     Route: 048

REACTIONS (4)
  - BRADYCARDIA [None]
  - HYPOTENSION [None]
  - MEDICATION ERROR [None]
  - VOMITING [None]
